FAERS Safety Report 7779712-8 (Version None)
Quarter: 2011Q3

REPORT INFORMATION
  Report Type: 
  Country: None (occurrence: None)
  Receive Date: 20110927
  Receipt Date: 20110919
  Transmission Date: 20111222
  Serious: Yes (Death)
  Sender: FDA-Public Use
  Company Number: US-UCBSA-039888

PATIENT
  Sex: Female
  Weight: 100 kg

DRUGS (5)
  1. LISINOPRIL [Concomitant]
  2. VIMPAT [Suspect]
     Indication: CONVULSION
     Dates: start: 20110425, end: 20110809
  3. VALPROIC ACID [Concomitant]
     Dosage: 250, 4 AM, 3 IN PRN
  4. WARFARIN SODIUM [Concomitant]
  5. GABAPENTIN [Concomitant]

REACTIONS (1)
  - DEATH [None]
